FAERS Safety Report 11330016 (Version 2)
Quarter: 2015Q3

REPORT INFORMATION
  Report Type: Spontaneous
  Country: CN (occurrence: CN)
  Receive Date: 20150803
  Receipt Date: 20150812
  Transmission Date: 20151125
  Serious: Yes (Other)
  Sender: FDA-Public Use
  Company Number: CN-JNJFOC-20150721989

PATIENT

DRUGS (1)
  1. ITRACONAZOLE. [Suspect]
     Active Substance: ITRACONAZOLE
     Indication: PRODUCT USED FOR UNKNOWN INDICATION
     Route: 065

REACTIONS (39)
  - Liver function test abnormal [Recovering/Resolving]
  - Menstrual disorder [Recovering/Resolving]
  - Electrocardiogram QT prolonged [Recovering/Resolving]
  - Diarrhoea [Recovering/Resolving]
  - Pruritus [Recovering/Resolving]
  - Decreased appetite [Recovering/Resolving]
  - Anxiety [Recovering/Resolving]
  - Ophthalmoplegia [Recovering/Resolving]
  - Gastrointestinal injury [Recovering/Resolving]
  - Skin exfoliation [Recovering/Resolving]
  - Gastrooesophageal reflux disease [Recovering/Resolving]
  - Irritability [Recovering/Resolving]
  - Paraesthesia [Recovering/Resolving]
  - Erythrodermic psoriasis [Recovering/Resolving]
  - Palpitations [Recovering/Resolving]
  - Fatigue [Recovering/Resolving]
  - Oedema peripheral [Recovering/Resolving]
  - Chest discomfort [Recovering/Resolving]
  - Jaundice [Recovering/Resolving]
  - Erythema multiforme [Recovering/Resolving]
  - Functional gastrointestinal disorder [Recovering/Resolving]
  - Tremor [Recovering/Resolving]
  - Pseudocyst [Recovering/Resolving]
  - Rosacea [Recovering/Resolving]
  - Drug-induced liver injury [Recovering/Resolving]
  - Nausea [Recovering/Resolving]
  - Proteinuria [Recovering/Resolving]
  - White blood cell count decreased [Recovering/Resolving]
  - Cystitis haemorrhagic [Recovering/Resolving]
  - Hypokalaemia [Recovering/Resolving]
  - Heart injury [Recovering/Resolving]
  - Abdominal pain [Recovering/Resolving]
  - Headache [Recovering/Resolving]
  - Torsade de pointes [Recovering/Resolving]
  - Scarlet fever [Recovering/Resolving]
  - Drug eruption [Recovering/Resolving]
  - Dermatitis bullous [Recovering/Resolving]
  - Tubulointerstitial nephritis [Recovering/Resolving]
  - Insomnia [Recovering/Resolving]
